FAERS Safety Report 9976276 (Version 1)
Quarter: 2014Q1

REPORT INFORMATION
  Report Type: Report from Study
  Country: US (occurrence: US)
  Receive Date: 20140306
  Receipt Date: 20140306
  Transmission Date: 20141002
  Serious: No
  Sender: FDA-Public Use
  Company Number: US-ABBVIE-13P-163-1166407-00

PATIENT
  Age: 84 Year
  Sex: Female

DRUGS (8)
  1. HUMIRA [Suspect]
     Indication: RHEUMATOID ARTHRITIS
  2. UNNAMED MEDICATION [Concomitant]
     Indication: HYPERTENSION
  3. PRESERVISION [Concomitant]
     Indication: EYE DISORDER
  4. CITROCAL MAX WITH VITAMIN D [Concomitant]
     Indication: MINERAL SUPPLEMENTATION
  5. CITROCAL MAX WITH VITAMIN D [Concomitant]
     Indication: VITAMIN SUPPLEMENTATION
  6. LUTEIN [Concomitant]
     Indication: SUPPLEMENTATION THERAPY
  7. VITAMIN C [Concomitant]
     Indication: VITAMIN SUPPLEMENTATION
  8. UNNAMED MEDICATION [Concomitant]
     Indication: FAECES HARD

REACTIONS (6)
  - Poor quality drug administered [Not Recovered/Not Resolved]
  - Incorrect product storage [Not Recovered/Not Resolved]
  - Gait disturbance [Not Recovered/Not Resolved]
  - Dizziness [Unknown]
  - Sinus congestion [Unknown]
  - Arthralgia [Not Recovered/Not Resolved]
